FAERS Safety Report 23456521 (Version 1)
Quarter: 2024Q1

REPORT INFORMATION
  Report Type: Spontaneous
  Country: US (occurrence: None)
  Receive Date: 20240129
  Receipt Date: 20240129
  Transmission Date: 20240410
  Serious: Yes (Hospitalization)
  Sender: FDA-Public Use
  Company Number: None

PATIENT
  Age: 47 Year
  Sex: Female

DRUGS (24)
  1. MYCOPHENOLIC ACID [Suspect]
     Active Substance: MYCOPHENOLIC ACID
     Indication: Prophylaxis against transplant rejection
     Dosage: 750MG BID ORAL?
     Route: 048
     Dates: start: 20060918
  2. CYCLOSPORINE [Suspect]
     Active Substance: CYCLOSPORINE
     Indication: Prophylaxis against transplant rejection
     Dosage: 25MG BID ORAL
     Route: 048
     Dates: start: 20060918
  3. ATORVASTATIN [Concomitant]
     Active Substance: ATORVASTATIN
  4. CEFDINIR [Concomitant]
     Active Substance: CEFDINIR
  5. CLONIDINE [Concomitant]
     Active Substance: CLONIDINE
  6. CYCLOSPORINE [Concomitant]
     Active Substance: CYCLOSPORINE
  7. DULOXETINE [Concomitant]
     Active Substance: DULOXETINE
  8. FLUCONAZOLE [Concomitant]
     Active Substance: FLUCONAZOLE
  9. FOLIC ACID [Concomitant]
     Active Substance: FOLIC ACID
  10. GABAPENTIN [Concomitant]
     Active Substance: GABAPENTIN
  11. ACETAMINOPHEN\HYDROCODONE [Concomitant]
     Active Substance: ACETAMINOPHEN\HYDROCODONE
  12. LEVOFLOXACIN [Concomitant]
     Active Substance: LEVOFLOXACIN
  13. LINEZOLID [Concomitant]
     Active Substance: LINEZOLID
  14. METHENAMINE HIPPURATE [Concomitant]
     Active Substance: METHENAMINE HIPPURATE
  15. MYCOPHENOLIC ACID [Concomitant]
     Active Substance: MYCOPHENOLIC ACID
  16. NYSTATIN [Concomitant]
     Active Substance: NYSTATIN
  17. OMEPRAZOLE [Concomitant]
     Active Substance: OMEPRAZOLE
  18. PREDNISONE [Concomitant]
     Active Substance: PREDNISONE
  19. SULFAMETHOXAZOLE\TRIMETHOPRIM [Concomitant]
     Active Substance: SULFAMETHOXAZOLE\TRIMETHOPRIM
  20. TIZANIDINE [Concomitant]
     Active Substance: TIZANIDINE
  21. VITAMIN D [Concomitant]
     Active Substance: VITAMIN D NOS
  22. VITAMIN D3 [Concomitant]
     Active Substance: CHOLECALCIFEROL
  23. ALIGN [Concomitant]
     Active Substance: BIFIDOBACTERIUM LONGUM SUBSP. INFANTIS
  24. ALLEGRA ALLERGY [Concomitant]
     Active Substance: FEXOFENADINE HYDROCHLORIDE

REACTIONS (2)
  - Sinus disorder [None]
  - Cystitis [None]

NARRATIVE: CASE EVENT DATE: 20240101
